FAERS Safety Report 13540421 (Version 1)
Quarter: 2017Q2

REPORT INFORMATION
  Report Type: Report from Study
  Country: CN (occurrence: CN)
  Receive Date: 20170512
  Receipt Date: 20170512
  Transmission Date: 20170830
  Serious: Yes (Hospitalization)
  Sender: FDA-Public Use
  Company Number: PHHY2017CN068914

PATIENT
  Age: 44 Year
  Sex: Male

DRUGS (4)
  1. ENALAPRIL MALEATE. [Concomitant]
     Active Substance: ENALAPRIL MALEATE
     Indication: HYPERTENSION
     Route: 065
  2. PLENDIL [Concomitant]
     Active Substance: FELODIPINE
     Indication: HYPERTENSION
     Route: 065
  3. VALSARTAN. [Suspect]
     Active Substance: VALSARTAN
     Indication: HYPERTENSION
     Dosage: UNK
     Route: 048
  4. LEVAMLODIPINE BESILATE [Concomitant]
     Active Substance: LEVAMLODIPINE BESYLATE
     Indication: HYPERTENSION
     Route: 065

REACTIONS (18)
  - Renal failure [Unknown]
  - Azotaemia [Unknown]
  - Oedema peripheral [Unknown]
  - Occult blood positive [Unknown]
  - Urine output increased [Unknown]
  - Cough [Recovering/Resolving]
  - Productive cough [Recovering/Resolving]
  - Fatigue [Recovering/Resolving]
  - Discomfort [Unknown]
  - Hyperlipidaemia [Unknown]
  - Blood pressure increased [Recovering/Resolving]
  - Lung infection [Unknown]
  - Vomiting [Recovering/Resolving]
  - Hyperparathyroidism secondary [Unknown]
  - Viral upper respiratory tract infection [Unknown]
  - Glomerulonephritis chronic [Unknown]
  - Nausea [Recovering/Resolving]
  - Renal atrophy [Unknown]

NARRATIVE: CASE EVENT DATE: 20170122
